FAERS Safety Report 14609674 (Version 1)
Quarter: 2018Q1

REPORT INFORMATION
  Report Type: Spontaneous
  Country: US (occurrence: US)
  Receive Date: 20180306
  Receipt Date: 20180306
  Transmission Date: 20180509
  Serious: Yes (Other)
  Sender: FDA-Public Use
  Company Number: None

PATIENT
  Age: 9 Year
  Sex: Male
  Weight: 50.5 kg

DRUGS (2)
  1. GUANFACINE. [Concomitant]
     Active Substance: GUANFACINE
  2. ATOMEXETINE 40MG GLENMARK [Suspect]
     Active Substance: ATOMOXETINE
     Indication: ATTENTION DEFICIT/HYPERACTIVITY DISORDER
     Route: 048
     Dates: start: 20180101

REACTIONS (6)
  - Anger [None]
  - Restlessness [None]
  - Psychomotor hyperactivity [None]
  - Conduct disorder [None]
  - Agitation [None]
  - Condition aggravated [None]

NARRATIVE: CASE EVENT DATE: 20180101
